FAERS Safety Report 23419291 (Version 2)
Quarter: 2024Q1

REPORT INFORMATION
  Report Type: Report from Study
  Country: CO (occurrence: CO)
  Receive Date: 20240118
  Receipt Date: 20240206
  Transmission Date: 20240409
  Serious: Yes (Hospitalization)
  Sender: FDA-Public Use
  Company Number: CO-BIOGEN-2024BI01245486

PATIENT
  Age: 18 Month
  Weight: 8.6 kg

DRUGS (3)
  1. SPINRAZA [Suspect]
     Active Substance: NUSINERSEN
     Indication: Spinal muscular atrophy
     Route: 050
  2. BACILLUS SUBTILIS [Concomitant]
     Active Substance: BACILLUS SUBTILIS
     Indication: Product used for unknown indication
     Dosage: 2000 MILLIONS
     Route: 050
     Dates: start: 20240108
  3. ZINC SULFATE [Concomitant]
     Active Substance: ZINC SULFATE
     Indication: Product used for unknown indication
     Dosage: 2.5 CC
     Route: 050
     Dates: start: 20240108

REACTIONS (2)
  - Viral infection [Recovered/Resolved]
  - Immunisation reaction [Unknown]

NARRATIVE: CASE EVENT DATE: 20240108
